FAERS Safety Report 9976566 (Version 1)
Quarter: 2014Q1

REPORT INFORMATION
  Report Type: Report from Study
  Country: US (occurrence: US)
  Receive Date: 20140306
  Receipt Date: 20140306
  Transmission Date: 20141002
  Serious: No
  Sender: FDA-Public Use
  Company Number: US-ABBVIE-13P-163-1167560-00

PATIENT
  Sex: Female
  Weight: 3.22 kg

DRUGS (1)
  1. HUMIRA [Suspect]
     Indication: MATERNAL EXPOSURE TIMING UNSPECIFIED
     Route: 064

REACTIONS (3)
  - Umbilical hernia [Not Recovered/Not Resolved]
  - Haemangioma [Not Recovered/Not Resolved]
  - Foetal exposure during pregnancy [Unknown]
